FAERS Safety Report 5932882-6 (Version None)
Quarter: 2008Q4

REPORT INFORMATION
  Report Type: 
  Country: None (occurrence: None)
  Receive Date: 20081028
  Receipt Date: 20081022
  Transmission Date: 20090506
  Serious: Yes (Life-Threatening)
  Sender: FDA-Public Use
  Company Number: AR-ELI_LILLY_AND_COMPANY-AR200810005447

PATIENT
  Age: 12 Year
  Sex: Male

DRUGS (1)
  1. RECIT [Suspect]
     Dosage: UNK, UNKNOWN
     Route: 048

REACTIONS (1)
  - CARDIO-RESPIRATORY ARREST [None]
